FAERS Safety Report 7287049-9 (Version None)
Quarter: 2011Q1

REPORT INFORMATION
  Report Type: 
  Country: None (occurrence: None)
  Receive Date: 20110211
  Receipt Date: 20110128
  Transmission Date: 20110831
  Serious: No
  Sender: FDA-Public Use
  Company Number: US-BIOGENIDEC-2011BI004343

PATIENT
  Age: 38 Year
  Sex: Female

DRUGS (1)
  1. TYSABRI [Suspect]
     Indication: MULTIPLE SCLEROSIS
     Route: 042
     Dates: start: 20091203

REACTIONS (9)
  - INCREASED UPPER AIRWAY SECRETION [None]
  - FEELING COLD [None]
  - MENORRHAGIA [None]
  - HYPERHIDROSIS [None]
  - MENSTRUATION IRREGULAR [None]
  - BURNING SENSATION [None]
  - FATIGUE [None]
  - PAINFUL RESPIRATION [None]
  - MIDDLE EAR EFFUSION [None]
